FAERS Safety Report 11218613 (Version 2)
Quarter: 2015Q3

REPORT INFORMATION
  Report Type: Spontaneous
  Country: JP (occurrence: JP)
  Receive Date: 20150625
  Receipt Date: 20150806
  Transmission Date: 20151125
  Serious: Yes (Hospitalization, Other)
  Sender: FDA-Public Use
  Company Number: JP-PFIZER INC-2015206354

PATIENT
  Age: 77 Year
  Sex: Female

DRUGS (2)
  1. KARY UNI [Concomitant]
     Active Substance: PIRENOXINE
     Indication: CATARACT
  2. LATANOPROST. [Suspect]
     Active Substance: LATANOPROST

REACTIONS (3)
  - Thoracic vertebral fracture [Unknown]
  - Compression fracture [Unknown]
  - Blepharal pigmentation [Unknown]
